FAERS Safety Report 15686212 (Version 1)
Quarter: 2018Q4

REPORT INFORMATION
  Report Type: Spontaneous
  Country: GB (occurrence: GB)
  Receive Date: 20181204
  Receipt Date: 20181204
  Transmission Date: 20190205
  Serious: Yes (Disabling, Other)
  Sender: FDA-Public Use
  Company Number: PHHY2018GB171014

PATIENT
  Age: 25 Year
  Sex: Male

DRUGS (1)
  1. COSENTYX [Suspect]
     Active Substance: SECUKINUMAB
     Indication: PSORIASIS
     Dosage: 300 MG, QMO (SAME DATE EACH MONTH)
     Route: 058
     Dates: start: 2018, end: 20180821

REACTIONS (4)
  - Pustular psoriasis [Recovering/Resolving]
  - Skin exfoliation [Unknown]
  - Pain [Unknown]
  - Erythema [Unknown]

NARRATIVE: CASE EVENT DATE: 201808
